FAERS Safety Report 4677141-7 (Version None)
Quarter: 2005Q2

REPORT INFORMATION
  Report Type: 
  Country: None (occurrence: None)
  Receive Date: 20050525
  Receipt Date: 20050525
  Transmission Date: 20051028
  Serious: No
  Sender: FDA-Public Use
  Company Number: None

PATIENT
  Sex: Male
  Weight: 86.82 kg

DRUGS (3)
  1. CISPLATIN [Suspect]
     Indication: NEOPLASM MALIGNANT
     Dates: start: 20050426
  2. RADIATION [Suspect]
  3. PERCOCET [Concomitant]

REACTIONS (1)
  - ORAL INTAKE REDUCED [None]
